FAERS Safety Report 6606586-0 (Version None)
Quarter: 2010Q1

REPORT INFORMATION
  Report Type: 
  Country: None (occurrence: None)
  Receive Date: 20100226
  Receipt Date: 20100217
  Transmission Date: 20100710
  Serious: Yes (Hospitalization, Other)
  Sender: FDA-Public Use
  Company Number: GB-PFIZER INC-2008065031

PATIENT
  Age: 31 Year
  Sex: Female

DRUGS (10)
  1. IDARUBICIN HCL [Suspect]
     Indication: ACUTE MYELOID LEUKAEMIA
  2. CYCLOPHOSPHAMIDE [Suspect]
     Indication: STEM CELL TRANSPLANT
  3. CYTARABINE [Suspect]
     Indication: ACUTE MYELOID LEUKAEMIA
  4. ALEMTUZUMAB [Suspect]
     Indication: STEM CELL TRANSPLANT
  5. BUSULFAN [Suspect]
     Indication: STEM CELL TRANSPLANT
  6. FLUDARABINE [Suspect]
     Indication: ACUTE MYELOID LEUKAEMIA
  7. NEUPOGEN [Suspect]
  8. CYCLOSPORINE [Concomitant]
  9. MYCOPHENOLATE MOFETIL [Concomitant]
  10. TAZOBACTAM [Concomitant]

REACTIONS (10)
  - ACUTE ABDOMEN [None]
  - CSF TEST ABNORMAL [None]
  - HEPATITIS [None]
  - ILEUS [None]
  - IMMUNE RECONSTITUTION SYNDROME [None]
  - LOSS OF CONSCIOUSNESS [None]
  - NAUSEA [None]
  - PYREXIA [None]
  - TUBERCULOSIS [None]
  - VOMITING [None]
